FAERS Safety Report 9654688 (Version 2)
Quarter: 2013Q4

REPORT INFORMATION
  Report Type: Spontaneous
  Country: IT (occurrence: IT)
  Receive Date: 20131029
  Receipt Date: 20131105
  Transmission Date: 20140711
  Serious: Yes (Other)
  Sender: FDA-Public Use
  Company Number: IT-BMSGILMSD-2013-0086043

PATIENT
  Age: 48 Year
  Sex: Male

DRUGS (2)
  1. ATRIPLA [Suspect]
     Indication: HIV INFECTION
     Dosage: 1 DF, UNK
     Route: 048
     Dates: start: 20120612, end: 20130823
  2. DIBASE [Suspect]
     Indication: VITAMIN D DEFICIENCY
     Dosage: 30 DF, UNK
     Route: 048
     Dates: start: 20120711, end: 20131014

REACTIONS (6)
  - Depression [Unknown]
  - Depressed mood [Recovered/Resolved]
  - Food aversion [Recovered/Resolved]
  - Apathy [Recovered/Resolved]
  - Malaise [Recovered/Resolved]
  - Asthenia [Recovered/Resolved]
